FAERS Safety Report 6153388-8 (Version None)
Quarter: 2009Q2

REPORT INFORMATION
  Report Type: 
  Country: None (occurrence: None)
  Receive Date: 20090409
  Receipt Date: 20090409
  Transmission Date: 20091009
  Serious: Yes (Other)
  Sender: FDA-Public Use
  Company Number: None

PATIENT
  Sex: Female
  Weight: 54.4316 kg

DRUGS (2)
  1. AMOXICILLIN AND CLAVULANATE POTASSIUM [Suspect]
     Indication: CYSTITIS
     Dosage: 875-125 MG DAILY
     Dates: start: 20090216, end: 20090223
  2. PANTOPRAZOLE SODIUM [Suspect]
     Indication: GASTRIC PH
     Dosage: 40 MG TAB WYE DALY
     Dates: start: 20090217, end: 20090223

REACTIONS (2)
  - DIARRHOEA [None]
  - DRUG INEFFECTIVE [None]
